FAERS Safety Report 7050753-1 (Version None)
Quarter: 2010Q4

REPORT INFORMATION
  Report Type: 
  Country: None (occurrence: None)
  Receive Date: 20101019
  Receipt Date: 20101011
  Transmission Date: 20110411
  Serious: No
  Sender: FDA-Public Use
  Company Number: US-BIOGENIDEC-2010BI034403

PATIENT
  Sex: Female

DRUGS (1)
  1. TYSABRI [Suspect]
     Indication: MULTIPLE SCLEROSIS
     Route: 042
     Dates: start: 20100105, end: 20100922

REACTIONS (8)
  - APHAGIA [None]
  - ASTHENIA [None]
  - BACK PAIN [None]
  - FLUID INTAKE REDUCED [None]
  - GAIT DISTURBANCE [None]
  - ORAL CANDIDIASIS [None]
  - RADICULOPATHY [None]
  - WEIGHT DECREASED [None]
